FAERS Safety Report 8879019 (Version 1)
Quarter: 2012Q4

REPORT INFORMATION
  Report Type: 
  Country: IT (occurrence: IT)
  Receive Date: 20121026
  Receipt Date: 20121026
  Transmission Date: 20130627
  Serious: Yes (Hospitalization)
  Sender: FDA-Public Use
  Company Number: IT-TEVA-365909ISR

PATIENT
  Age: 79 Year
  Sex: Female

DRUGS (2)
  1. PERINDOPRIL [Suspect]
     Dosage: 1 Dosage forms Daily;
     Route: 048
     Dates: start: 20110805, end: 20120804
  2. ATENOLOL [Suspect]
     Dosage: 1 Dosage forms Daily;
     Route: 048
     Dates: start: 20110805, end: 20120804

REACTIONS (1)
  - Presyncope [Recovering/Resolving]
